FAERS Safety Report 18718342 (Version 3)
Quarter: 2021Q2

REPORT INFORMATION
  Report Type: Report from Study
  Country: CO (occurrence: CO)
  Receive Date: 20210108
  Receipt Date: 20210610
  Transmission Date: 20210717
  Serious: Yes (Other)
  Sender: FDA-Public Use
  Company Number: NVSC2020CO318219

PATIENT
  Age: 80 Year
  Sex: Female
  Weight: 78 kg

DRUGS (5)
  1. XOLAIR [Suspect]
     Active Substance: OMALIZUMAB
     Dosage: 300 MG, QMO
     Route: 058
  2. BERODUAL [Concomitant]
     Active Substance: FENOTEROL HYDROBROMIDE\IPRATROPIUM BROMIDE
     Indication: ASTHMA
     Dosage: 1 DF, Q12H (STARTED 2 YEARS AGO)
     Route: 065
  3. XOLAIR [Suspect]
     Active Substance: OMALIZUMAB
     Indication: ASTHMA
     Dosage: 150 MG, BIW (STARTED 2 YEARS AGO)
     Route: 058
  4. LOSARTAN. [Suspect]
     Active Substance: LOSARTAN
     Indication: HYPERTENSION
     Dosage: 50 MG, Q12H (STARTED 2 YEARS AGO)
     Route: 048
  5. AEROVIAL [Concomitant]
     Indication: ASTHMA
     Dosage: UNK (6/200 MCG, STARTED 2 YEARS AGO)
     Route: 048

REACTIONS (7)
  - Asthmatic crisis [Not Recovered/Not Resolved]
  - Chest discomfort [Unknown]
  - Choking sensation [Not Recovered/Not Resolved]
  - Cardiac disorder [Unknown]
  - Heart rate increased [Unknown]
  - Choking [Unknown]
  - Dyspnoea [Unknown]

NARRATIVE: CASE EVENT DATE: 202003
